FAERS Safety Report 10046900 (Version 1)
Quarter: 2014Q1

REPORT INFORMATION
  Report Type: Spontaneous
  Country: US (occurrence: None)
  Receive Date: 20140328
  Receipt Date: 20140328
  Transmission Date: 20141002
  Serious: Yes (Other)
  Sender: FDA-Public Use
  Company Number: None

PATIENT
  Age: 40 Year
  Sex: Female
  Weight: 40.82 kg

DRUGS (1)
  1. MIRVASO [Suspect]
     Indication: ROSACEA
     Dosage: THIN LAYER ON FACE  ONCE DAILY  APPLIED TO A SURFACE, USUALLY THE SKIN
     Route: 061
     Dates: start: 20140320, end: 20140325

REACTIONS (4)
  - Rosacea [None]
  - Product quality issue [None]
  - Condition aggravated [None]
  - Flushing [None]
